FAERS Safety Report 9420226 (Version 1)
Quarter: 2013Q3

REPORT INFORMATION
  Report Type: Spontaneous
  Country: US (occurrence: US)
  Receive Date: 20130725
  Receipt Date: 20130725
  Transmission Date: 20140515
  Serious: No
  Sender: FDA-Public Use
  Company Number: US-PFIZER INC-2013215102

PATIENT
  Age: 51 Year
  Sex: Male
  Weight: 99.77 kg

DRUGS (2)
  1. ATORVASTATIN CALCIUM [Suspect]
     Indication: BLOOD CHOLESTEROL INCREASED
     Dosage: 40 MG, 1X/DAY
     Dates: start: 2011, end: 2012
  2. NOVOLOG [Concomitant]
     Indication: DIABETES MELLITUS
     Dosage: 10-18 IU, AS NEEDED

REACTIONS (1)
  - Abdominal pain [Recovered/Resolved]
